FAERS Safety Report 9326753 (Version 1)
Quarter: 2013Q2

REPORT INFORMATION
  Report Type: Spontaneous
  Country: US (occurrence: US)
  Receive Date: 20130604
  Receipt Date: 20130604
  Transmission Date: 20140414
  Serious: No
  Sender: FDA-Public Use
  Company Number: US-AMGEN-USASP2013034511

PATIENT
  Age: 64 Year
  Sex: Female
  Weight: 61.22 kg

DRUGS (6)
  1. ENBREL [Suspect]
     Indication: RHEUMATOID ARTHRITIS
     Dosage: UNK
     Dates: start: 2007
  2. METHOTREXATE [Suspect]
     Indication: RHEUMATOID ARTHRITIS
     Dosage: 6 PILLS IN A WEEK
     Dates: start: 2007
  3. SIMPONI [Suspect]
     Indication: RHEUMATOID ARTHRITIS
  4. HUMIRA [Suspect]
     Indication: RHEUMATOID ARTHRITIS
     Dosage: UNK
  5. LEUCOVORIN /00566701/ [Suspect]
     Dosage: UNK
  6. ORENCIA [Suspect]
     Indication: RHEUMATOID ARTHRITIS
     Dosage: UNK

REACTIONS (9)
  - Dry mouth [Unknown]
  - Finger deformity [Unknown]
  - Malaise [Unknown]
  - Vocal cord cyst [Unknown]
  - Sinus disorder [Unknown]
  - Alopecia [Unknown]
  - Knee deformity [Unknown]
  - Rheumatoid arthritis [Unknown]
  - Drug ineffective [Unknown]
